FAERS Safety Report 8868171 (Version 1)
Quarter: 2012Q4

REPORT INFORMATION
  Report Type: 
  Country: US (occurrence: US)
  Receive Date: 20121025
  Receipt Date: 20121025
  Transmission Date: 20130627
  Serious: No
  Sender: FDA-Public Use
  Company Number: US-AMGEN-USASP2012019325

PATIENT
  Age: 72 Year
  Sex: Female

DRUGS (1)
  1. ENBREL [Suspect]
     Indication: RHEUMATOID ARTHRITIS
     Dosage: 50 mg, qwk
     Dates: start: 201106

REACTIONS (6)
  - Nodule [Unknown]
  - Neoplasm skin [Unknown]
  - Skin fissures [Unknown]
  - Eye pain [Unknown]
  - Ear pain [Unknown]
  - Malaise [Unknown]
